FAERS Safety Report 7131287-2 (Version None)
Quarter: 2010Q4

REPORT INFORMATION
  Report Type: 
  Country: None (occurrence: None)
  Receive Date: 20101124
  Receipt Date: 20101124
  Transmission Date: 20110411
  Serious: Yes (Hospitalization, Disabling)
  Sender: FDA-Public Use
  Company Number: None

PATIENT
  Age: 61 Year
  Sex: Female
  Weight: 64.1 kg

DRUGS (1)
  1. BONIVA [Suspect]
     Indication: OSTEOPOROSIS
     Dates: start: 20080611, end: 20100930

REACTIONS (6)
  - ABSCESS LIMB [None]
  - CELLULITIS [None]
  - INFUSION SITE PAIN [None]
  - INFUSION SITE SWELLING [None]
  - OEDEMA PERIPHERAL [None]
  - THROMBOPHLEBITIS SUPERFICIAL [None]
